FAERS Safety Report 25210329 (Version 1)
Quarter: 2025Q2

REPORT INFORMATION
  Report Type: Spontaneous
  Country: CA (occurrence: CA)
  Receive Date: 20250417
  Receipt Date: 20250417
  Transmission Date: 20250717
  Serious: Yes (Life-Threatening, Other)
  Sender: MERCK SHARP AND DOHME
  Company Number: CA-009507513-2274324

PATIENT

DRUGS (3)
  1. POSACONAZOLE [Suspect]
     Active Substance: POSACONAZOLE
     Route: 065
  2. FOSCARNET SODIUM [Suspect]
     Active Substance: FOSCARNET SODIUM
     Route: 065
  3. BELUMOSUDIL MESYLATE [Suspect]
     Active Substance: BELUMOSUDIL MESYLATE
     Indication: Acute graft versus host disease in skin
     Route: 065

REACTIONS (1)
  - Toxic epidermal necrolysis [Recovering/Resolving]
